FAERS Safety Report 14143606 (Version 3)
Quarter: 2017Q4

REPORT INFORMATION
  Report Type: Report from Study
  Country: BR (occurrence: BR)
  Receive Date: 20171031
  Receipt Date: 20171221
  Transmission Date: 20180321
  Serious: Yes (Hospitalization, Other)
  Sender: FDA-Public Use
  Company Number: PHHY2017BR158968

PATIENT
  Sex: Female
  Weight: 45 kg

DRUGS (4)
  1. MEMANTINE HYDROCHLORIDE. [Concomitant]
     Active Substance: MEMANTINE HYDROCHLORIDE
     Indication: DEMENTIA ALZHEIMER^S TYPE
     Dosage: 1 DF, QD (6 YEARS AGO)
     Route: 048
  2. EXELON PATCH [Suspect]
     Active Substance: RIVASTIGMINE
     Indication: DEMENTIA ALZHEIMER^S TYPE
     Dosage: 4.6 MG, QD PATCH 5(CM2)
     Route: 062
     Dates: start: 2016
  3. EXELON PATCH [Suspect]
     Active Substance: RIVASTIGMINE
     Dosage: 4.6 MG, QD PATCH 5(CM2)
     Route: 062
     Dates: start: 201711
  4. ARADOIS [Concomitant]
     Active Substance: LOSARTAN POTASSIUM
     Indication: HYPERTENSION
     Dosage: 1 DF, QD
     Route: 048

REACTIONS (7)
  - Application site erythema [Recovering/Resolving]
  - Diarrhoea [Unknown]
  - Faecaloma [Recovering/Resolving]
  - Faecal volume increased [Recovering/Resolving]
  - Choking [Unknown]
  - Cough [Unknown]
  - Product adhesion issue [Unknown]
